FAERS Safety Report 7465963-9 (Version None)
Quarter: 2011Q1

REPORT INFORMATION
  Report Type: 
  Country: None (occurrence: None)
  Receive Date: 20110302
  Receipt Date: 20100831
  Transmission Date: 20110831
  Serious: Yes (Hospitalization, Other)
  Sender: FDA-Public Use
  Company Number: 163-21880-10080235

PATIENT
  Age: 76 Year
  Sex: Female

DRUGS (12)
  1. DEXAMETHASONE [Concomitant]
  2. BACTRIM [Concomitant]
  3. AVALIDE [Concomitant]
  4. NEXIUM [Concomitant]
  5. FLUCONAZOLE [Concomitant]
  6. VITAMIN D [Concomitant]
  7. VITAMIN D [Concomitant]
  8. REVLIMID [Suspect]
     Indication: MULTIPLE MYELOMA
     Dosage: 10 MG, DAILY FOR 21 DAYS, PO, 10 MG, 1 IN 1 D, PO
     Route: 048
     Dates: start: 20100802
  9. REVLIMID [Suspect]
     Indication: MULTIPLE MYELOMA
     Dosage: 10 MG, DAILY FOR 21 DAYS, PO, 10 MG, 1 IN 1 D, PO
     Route: 048
     Dates: start: 20100501
  10. ACYCLOVIR [Concomitant]
  11. BYSTOLIC [Concomitant]
  12. ASPIRIN [Concomitant]

REACTIONS (2)
  - LUMBAR VERTEBRAL FRACTURE [None]
  - LOSS OF CONSCIOUSNESS [None]
